FAERS Safety Report 8365891-0 (Version None)
Quarter: 2012Q2

REPORT INFORMATION
  Report Type: 
  Country: None (occurrence: None)
  Receive Date: 20120515
  Receipt Date: 20120515
  Transmission Date: 20120825
  Serious: No
  Sender: FDA-Public Use
  Company Number: None

PATIENT
  Sex: Female

DRUGS (2)
  1. ENBREL [Suspect]
     Indication: RHEUMATOID ARTHRITIS
     Dosage: 50MG QW SQ
     Route: 058
     Dates: start: 20111103
  2. ENBREL [Suspect]
     Indication: INFLAMMATION
     Dosage: 50MG QW SQ
     Route: 058
     Dates: start: 20111103

REACTIONS (3)
  - HYPOAESTHESIA [None]
  - PARAESTHESIA ORAL [None]
  - PARAESTHESIA [None]
